FAERS Safety Report 10256530 (Version 1)
Quarter: 2014Q2

REPORT INFORMATION
  Report Type: Spontaneous
  Country: US (occurrence: US)
  Receive Date: 20140624
  Receipt Date: 20140624
  Transmission Date: 20141212
  Serious: No
  Sender: FDA-Public Use
  Company Number: US-ZOGENIX, INC.-2012ZX000250

PATIENT
  Age: 44 Year
  Sex: Female
  Weight: 60.84 kg

DRUGS (4)
  1. SUMAVEL DOSEPRO [Suspect]
     Indication: MIGRAINE
     Dates: start: 20120712
  2. CYMBALTA [Concomitant]
     Indication: DEPRESSION
  3. ZOLOFT [Concomitant]
     Indication: DEPRESSION
  4. AROMASIN [Concomitant]
     Indication: BREAST CANCER
     Route: 048

REACTIONS (2)
  - Injection site extravasation [Recovered/Resolved]
  - Injection site swelling [Not Recovered/Not Resolved]
